FAERS Safety Report 5390304-0 (Version None)
Quarter: 2007Q3

REPORT INFORMATION
  Report Type: 
  Country: None (occurrence: None)
  Receive Date: 20070718
  Receipt Date: 20070704
  Transmission Date: 20080115
  Serious: Yes (Hospitalization, Other)
  Sender: FDA-Public Use
  Company Number: NO-PFIZER INC-047-0981-980057

PATIENT
  Sex: Male

DRUGS (2)
  1. LIPITOR [Suspect]
     Indication: HYPERLIPIDAEMIA
     Dosage: DAILY DOSE:10MG-FREQ:DAILY
     Route: 048
     Dates: start: 19980218, end: 19980427
  2. LIPITOR [Suspect]
     Indication: HYPERCHOLESTEROLAEMIA
     Dates: start: 19980301, end: 19980301

REACTIONS (15)
  - ACTIVITIES OF DAILY LIVING IMPAIRED [None]
  - ARTHRITIS [None]
  - CARPAL TUNNEL SYNDROME [None]
  - DYSGRAPHIA [None]
  - HYPERSOMNIA [None]
  - MALAISE [None]
  - MUSCULAR WEAKNESS [None]
  - MYALGIA [None]
  - PAIN [None]
  - PERIARTHRITIS [None]
  - POLYMYALGIA RHEUMATICA [None]
  - POLYNEUROPATHY [None]
  - PSORIASIS [None]
  - READING DISORDER [None]
  - VISUAL ACUITY REDUCED [None]
